FAERS Safety Report 9728530 (Version 1)
Quarter: 2013Q4

REPORT INFORMATION
  Report Type: Spontaneous
  Country: NO (occurrence: NO)
  Receive Date: 20131204
  Receipt Date: 20131204
  Transmission Date: 20140711
  Serious: Yes (Hospitalization)
  Sender: FDA-Public Use
  Company Number: PHHY2013NO139397

PATIENT
  Age: 42 Year
  Sex: Male

DRUGS (1)
  1. VOLTAREN [Suspect]
     Indication: MYALGIA
     Dosage: 50 MG, TID
     Route: 048
     Dates: start: 20131002, end: 20131010

REACTIONS (1)
  - Cerebellar infarction [Recovering/Resolving]
